FAERS Safety Report 17451008 (Version 1)
Quarter: 2020Q1

REPORT INFORMATION
  Report Type: Report from Study
  Country: None (occurrence: US)
  Receive Date: 20200224
  Receipt Date: 20200224
  Transmission Date: 20200409
  Serious: Yes (Other)
  Sender: FDA-Public Use
  Company Number: US-ABBVIE-19K-163-3202829-00

PATIENT
  Sex: Male

DRUGS (3)
  1. HUMIRA [Suspect]
     Active Substance: ADALIMUMAB
     Dosage: DAY 15
     Route: 058
     Dates: start: 20191029, end: 20191029
  2. HUMIRA [Suspect]
     Active Substance: ADALIMUMAB
     Indication: CROHN^S DISEASE
     Dosage: DAY 1
     Route: 058
     Dates: start: 20191015, end: 20191015
  3. HUMIRA [Suspect]
     Active Substance: ADALIMUMAB
     Dosage: DAY 29 MAINTENANCE DOSE AND THERE AFTER
     Route: 058
     Dates: start: 20191112

REACTIONS (13)
  - Keratomileusis [Unknown]
  - Insomnia [Recovering/Resolving]
  - Diarrhoea [Recovering/Resolving]
  - Depressed mood [Unknown]
  - Fatigue [Not Recovered/Not Resolved]
  - Impaired work ability [Recovering/Resolving]
  - Fear [Recovering/Resolving]
  - Abdominal pain [Recovering/Resolving]
  - Anxiety [Recovering/Resolving]
  - Rectal haemorrhage [Recovering/Resolving]
  - Post procedural complication [Unknown]
  - Dyspnoea exertional [Unknown]
  - Nasopharyngitis [Unknown]

NARRATIVE: CASE EVENT DATE: 2019
